FAERS Safety Report 13839597 (Version 2)
Quarter: 2017Q4

REPORT INFORMATION
  Report Type: Report from Study
  Country: US (occurrence: US)
  Receive Date: 20170807
  Receipt Date: 20171220
  Transmission Date: 20180320
  Serious: No
  Sender: FDA-Public Use
  Company Number: PHEH2017US024121

PATIENT
  Sex: Female

DRUGS (1)
  1. AFINITOR [Suspect]
     Active Substance: EVEROLIMUS
     Indication: PRODUCT USED FOR UNKNOWN INDICATION
     Dosage: UNK
     Route: 065

REACTIONS (8)
  - Sensitisation [Unknown]
  - Pneumonitis [Unknown]
  - Decreased appetite [Unknown]
  - Joint swelling [Unknown]
  - Epistaxis [Unknown]
  - Dysgeusia [Unknown]
  - Diarrhoea [Unknown]
  - Peripheral swelling [Unknown]
